FAERS Safety Report 9324692 (Version 2)
Quarter: 2013Q3

REPORT INFORMATION
  Report Type: Report from Study
  Country: JP (occurrence: JP)
  Receive Date: 20130603
  Receipt Date: 20130709
  Transmission Date: 20140515
  Serious: Yes (Other)
  Sender: FDA-Public Use
  Company Number: JP-GLAXOSMITHKLINE-B0894925A

PATIENT
  Age: 81 Year
  Sex: Male

DRUGS (3)
  1. VOTRIENT [Suspect]
     Indication: SOFT TISSUE CANCER
     Dosage: 600MG PER DAY
     Route: 048
     Dates: start: 20130125, end: 20130504
  2. AMLODIN [Concomitant]
     Indication: HYPERTENSION
     Route: 048
  3. REZALTAS [Concomitant]
     Indication: HYPERTENSION
     Route: 048

REACTIONS (6)
  - Hypertension [Recovering/Resolving]
  - Hair colour changes [Recovering/Resolving]
  - White blood cell count decreased [Recovering/Resolving]
  - Neutrophil count decreased [Recovered/Resolved]
  - Lymphocyte count decreased [Recovering/Resolving]
  - Tumour haemorrhage [Recovered/Resolved]
